FAERS Safety Report 21322496 (Version 3)
Quarter: 2022Q4

REPORT INFORMATION
  Report Type: Spontaneous
  Country: GB (occurrence: GB)
  Receive Date: 20220912
  Receipt Date: 20221020
  Transmission Date: 20230113
  Serious: Yes (Other)
  Sender: FDA-Public Use
  Company Number: GB-MYLANLABS-2022M1091905

PATIENT
  Age: 53 Year
  Sex: Male

DRUGS (2)
  1. CLOZARIL [Suspect]
     Active Substance: CLOZAPINE
     Indication: Schizophrenia
     Dosage: UNK
     Route: 048
     Dates: start: 20150414
  2. CLOZARIL [Suspect]
     Active Substance: CLOZAPINE
     Dosage: 112.5 MILLIGRAM, HS (112.5MG NOCTE)
     Route: 065

REACTIONS (9)
  - Hodgkin^s disease [Not Recovered/Not Resolved]
  - Mental impairment [Recovered/Resolved]
  - Suicidal ideation [Recovered/Resolved]
  - Urinary tract obstruction [Unknown]
  - Hydronephrosis [Unknown]
  - Hallucination, auditory [Recovered/Resolved]
  - Psychotic disorder [Unknown]
  - Off label use [Unknown]
  - Treatment noncompliance [Unknown]

NARRATIVE: CASE EVENT DATE: 20220101
